FAERS Safety Report 21452970 (Version 1)
Quarter: 2022Q4

REPORT INFORMATION
  Report Type: Other
  Country: US (occurrence: None)
  Receive Date: 20221013
  Receipt Date: 20221013
  Transmission Date: 20230113
  Serious: Yes (Other)
  Sender: FDA-Public Use
  Company Number: US-ROCHE-3197773

PATIENT
  Age: 84 Year
  Sex: Female

DRUGS (1)
  1. XELODA [Suspect]
     Active Substance: CAPECITABINE
     Indication: Breast cancer metastatic
     Dosage: TAKE 3 TABLETS BY MOUTH TWICE A DAY FOR 14 DAYS ON, THEN 7 DAYS OFF AS DIRECTED
     Route: 048

REACTIONS (1)
  - Pulmonary oedema [Unknown]
